FAERS Safety Report 7936702-X (Version None)
Quarter: 2011Q4

REPORT INFORMATION
  Report Type: 
  Country: None (occurrence: None)
  Receive Date: 20111108
  Receipt Date: 20111026
  Transmission Date: 20120403
  Serious: Yes (Other)
  Sender: FDA-Public Use
  Company Number: 2011029179

PATIENT
  Age: 50 Year
  Sex: Female
  Weight: 83.4619 kg

DRUGS (43)
  1. HIZENTRA [Suspect]
  2. VITAMIN B12 [Concomitant]
  3. FISH OIL (FISH OIL) [Concomitant]
  4. FLONASE [Concomitant]
  5. CALCIUM + D (OYSTER SHELL CALCIUM WITH VITAMIN D/01675501/ [Concomitant]
  6. GABAPENTIN [Concomitant]
  7. IBUPROFEN [Concomitant]
  8. CHLORZOXAZONE [Concomitant]
  9. PRENATAL (PRENATAL) [Concomitant]
  10. SYMBICORT [Concomitant]
  11. VICODIN [Concomitant]
  12. CELEXA [Concomitant]
  13. XYZAL (LEVOCETIRIZINE HYDROCHLORIDE) [Concomitant]
  14. MAGNESIUM (MAGNESIUM) [Concomitant]
  15. THEOPHYLLINE [Concomitant]
  16. DIOVAN [Concomitant]
  17. PREMPRO (PROVELLA-14) [Concomitant]
  18. PROMETHAZINE [Concomitant]
  19. PREDNISONE TAB [Concomitant]
  20. PROAIR (PROCATEROL HYDROCHLORIDE [Concomitant]
  21. OXYBUTYNIN [Concomitant]
  22. TREXIMET (SIMATRIPTAN) [Concomitant]
  23. FOSAMAX (ALENDRONATE SODIUIM) [Concomitant]
  24. KLONOPIN [Concomitant]
  25. CELEBREX [Concomitant]
  26. ALBUTEROL [Concomitant]
  27. RANITIDINE HYDROCHLORIDE [Concomitant]
  28. BACTRIM DS [Concomitant]
  29. HYDROCODONE-APAP (PROCET) [Concomitant]
  30. B-100 COMPLEX (NICOTINAM, W/PYRIDOXI. HCL/RIBOFL./THIAM.HCL) [Concomitant]
  31. HIZENTRA [Suspect]
     Indication: IMMUNODEFICIENCY COMMON VARIABLE
     Dosage: 10 G 1/WEEK, 2 GM 10 ML VIAL; 50 ML IN 4 SITES OVER 1 HOUR 17 MINUTES SUBCUTANEOUS (10 G1X/WEEK ; 2
     Route: 058
     Dates: start: 20101103
  32. HIZENTRA [Suspect]
     Indication: IMMUNODEFICIENCY COMMON VARIABLE
     Dosage: 10 G 1/WEEK, 2 GM 10 ML VIAL; 50 ML IN 4 SITES OVER 1 HOUR 17 MINUTES SUBCUTANEOUS (10 G1X/WEEK ; 2
     Route: 058
     Dates: start: 20110719
  33. HIZENTRA [Suspect]
     Indication: IMMUNODEFICIENCY COMMON VARIABLE
     Dosage: 10 G 1/WEEK, 2 GM 10 ML VIAL; 50 ML IN 4 SITES OVER 1 HOUR 17 MINUTES SUBCUTANEOUS (10 G1X/WEEK ; 2
     Route: 058
     Dates: start: 20110630
  34. HIZENTRA [Suspect]
     Indication: IMMUNODEFICIENCY COMMON VARIABLE
     Dosage: 10 G 1/WEEK, 2 GM 10 ML VIAL; 50 ML IN 4 SITES OVER 1 HOUR 17 MINUTES SUBCUTANEOUS (10 G1X/WEEK ; 2
     Route: 058
     Dates: start: 20101103
  35. HIZENTRA [Suspect]
  36. ASCORBIC ACID [Concomitant]
  37. SEROQUEL XR (QUETIAPINE) [Concomitant]
  38. SINGULAIR [Concomitant]
  39. TESSALON [Concomitant]
  40. OMEPRAZOLE [Concomitant]
  41. CIPRO [Concomitant]
  42. PRAVASTATIN [Concomitant]
  43. ATARAX [Concomitant]

REACTIONS (2)
  - KIDNEY INFECTION [None]
  - SINUSITIS [None]
